FAERS Safety Report 10095534 (Version 2)
Quarter: 2014Q2

REPORT INFORMATION
  Report Type: Spontaneous
  Country: US (occurrence: US)
  Receive Date: 20140422
  Receipt Date: 20140422
  Transmission Date: 20141212
  Serious: Yes (Other)
  Sender: FDA-Public Use
  Company Number: US-TMC-CABO-14004042

PATIENT
  Sex: Male
  Weight: 75 kg

DRUGS (10)
  1. COMETRIQ [Suspect]
     Indication: METASTASIS
     Dosage: 80 MG, QD
     Route: 048
     Dates: start: 20140204, end: 20140208
  2. COMETRIQ [Suspect]
     Dosage: 80 MG, QD
     Route: 048
     Dates: start: 20140211, end: 20140220
  3. COMETRIQ [Suspect]
     Dosage: 60 MG, QD
     Route: 048
     Dates: start: 20140221
  4. COMETRIQ [Suspect]
     Dosage: 40 MG, QD
     Route: 048
     Dates: start: 20140328
  5. INLYTA [Concomitant]
  6. RENAPLEX [Concomitant]
  7. AVODART [Concomitant]
  8. OMEPRAZOLE [Concomitant]
  9. GNP CENTURY TABLET [Concomitant]
  10. CARVEDILOL [Concomitant]

REACTIONS (19)
  - Fall [Unknown]
  - Gait disturbance [Unknown]
  - Joint injury [Not Recovered/Not Resolved]
  - Bursitis [Unknown]
  - Teeth brittle [Unknown]
  - Peripheral swelling [Not Recovered/Not Resolved]
  - Pain [Unknown]
  - Hypoaesthesia [Unknown]
  - Contusion [Unknown]
  - Temperature intolerance [Recovering/Resolving]
  - Burning sensation [Recovering/Resolving]
  - Decreased appetite [Unknown]
  - Nausea [Unknown]
  - Dry skin [Unknown]
  - Fatigue [Unknown]
  - Diarrhoea [Unknown]
  - Oral discomfort [Unknown]
  - Muscle spasms [Unknown]
  - Off label use [Unknown]
